FAERS Safety Report 8227987-3 (Version None)
Quarter: 2012Q1

REPORT INFORMATION
  Report Type: 
  Country: None (occurrence: None)
  Receive Date: 20120322
  Receipt Date: 20120131
  Transmission Date: 20120608
  Serious: No
  Sender: FDA-Public Use
  Company Number: US-BRISTOL-MYERS SQUIBB COMPANY-16376220

PATIENT
  Age: 73 Year
  Sex: Male

DRUGS (1)
  1. ERBITUX [Suspect]
     Indication: THROAT CANCER
     Dosage: STARTED 3 WEEKS AGO. 2 TREATMENTS

REACTIONS (5)
  - RASH [None]
  - DIARRHOEA [None]
  - OROPHARYNGEAL PAIN [None]
  - DYSPHAGIA [None]
  - FATIGUE [None]
